FAERS Safety Report 4529932-0 (Version None)
Quarter: 2004Q4

REPORT INFORMATION
  Report Type: 
  Country: None (occurrence: None)
  Receive Date: 20041214
  Receipt Date: 20041201
  Transmission Date: 20050328
  Serious: Yes (Other)
  Sender: FDA-Public Use
  Company Number: 2004103296

PATIENT
  Age: 73 Year
  Sex: Female
  Weight: 54.4316 kg

DRUGS (7)
  1. ZOLOFT [Suspect]
     Indication: ANXIETY
     Dosage: 50 MG (50 MG, 1 IN 1 D), ORAL
     Route: 048
  2. BUPROPION HYDROCHLORIDE [Suspect]
     Indication: ANXIETY
     Dates: end: 20040101
  3. PAROXETINE HCL [Suspect]
     Indication: ANXIETY
  4. PSYCHOLEPTICS (PSYCHOLEPTICS) [Suspect]
     Indication: ANXIETY
  5. PROVELLA-14 (ESTROGENS CONJUGATED, MEDROXYPROGESTERONE ACETATE) [Concomitant]
  6. CYCLOSPORINE [Concomitant]
  7. ALL OTEHR THERAPEUTIC PRODUCTS (ALL OTHER THERAPEUTIC PRODUCTS) [Concomitant]

REACTIONS (7)
  - ANXIETY [None]
  - CATARACT OPERATION [None]
  - DRUG INEFFECTIVE [None]
  - EYE DISORDER [None]
  - FORMICATION [None]
  - POST PROCEDURAL COMPLICATION [None]
  - VISION BLURRED [None]
